FAERS Safety Report 14279944 (Version 1)
Quarter: 2017Q4

REPORT INFORMATION
  Report Type: Spontaneous
  Country: CA (occurrence: CA)
  Receive Date: 20171212
  Receipt Date: 20171212
  Transmission Date: 20180321
  Serious: Yes (Other)
  Sender: FDA-Public Use
  Company Number: PHHY2017CA179870

PATIENT
  Age: 71 Year
  Sex: Female

DRUGS (2)
  1. PHENYLEPHRINE [Concomitant]
     Active Substance: PHENYLEPHRINE\PHENYLEPHRINE HYDROCHLORIDE
     Indication: BLOOD PRESSURE MANAGEMENT
     Route: 041
  2. HEPARIN [Suspect]
     Active Substance: HEPARIN SODIUM
     Indication: CAROTID ARTERY OCCLUSION
     Route: 041

REACTIONS (7)
  - Abdominal mass [Recovered/Resolved]
  - Abdominal wall haematoma [Recovered/Resolved]
  - Abdominal compartment syndrome [Unknown]
  - Abdominal pain [Recovered/Resolved]
  - Acute kidney injury [Unknown]
  - Urinary tract obstruction [Unknown]
  - Hydronephrosis [Unknown]
